FAERS Safety Report 19835451 (Version 3)
Quarter: 2021Q4

REPORT INFORMATION
  Report Type: Report from Study
  Country: US (occurrence: US)
  Receive Date: 20210916
  Receipt Date: 20211207
  Transmission Date: 20220303
  Serious: Yes (Hospitalization, Other)
  Sender: FDA-Public Use
  Company Number: US-ABBVIE-21K-163-4080478-00

PATIENT
  Age: 66 Year
  Sex: Male
  Weight: 89.892 kg

DRUGS (1)
  1. HUMIRA [Suspect]
     Active Substance: ADALIMUMAB
     Indication: Product used for unknown indication
     Route: 058

REACTIONS (5)
  - Loss of consciousness [Recovered/Resolved]
  - Concussion [Unknown]
  - Head injury [Recovered/Resolved]
  - Colitis [Unknown]
  - Fall [Unknown]

NARRATIVE: CASE EVENT DATE: 20200101
